FAERS Safety Report 7059665-0 (Version None)
Quarter: 2010Q4

REPORT INFORMATION
  Report Type: 
  Country: None (occurrence: None)
  Receive Date: 20101025
  Receipt Date: 20100921
  Transmission Date: 20110411
  Serious: No
  Sender: FDA-Public Use
  Company Number: US-MYLANLABS-2010S1017497

PATIENT
  Age: 46 Year
  Sex: Female
  Weight: 81.65 kg

DRUGS (3)
  1. DIVALPROEX SODIUM EXTENDED RELEASE [Suspect]
     Indication: ANXIETY
     Route: 048
     Dates: start: 20100401
  2. DIVALPROEX SODIUM EXTENDED RELEASE [Suspect]
     Indication: MOOD ALTERED
     Route: 048
     Dates: start: 20100401
  3. CLONAZEPAM [Concomitant]
     Indication: ANXIETY
     Dosage: USING ONE HALF OF A 0.5MG CLONAZEPAM TABLET B.I.D.
     Dates: start: 20090101

REACTIONS (4)
  - ASTHENIA [None]
  - CHEST PAIN [None]
  - NAUSEA [None]
  - TREMOR [None]
